FAERS Safety Report 6463692-1 (Version None)
Quarter: 2009Q4

REPORT INFORMATION
  Report Type: 
  Country: None (occurrence: None)
  Receive Date: 20091201
  Receipt Date: 20091119
  Transmission Date: 20100525
  Serious: Yes (Other)
  Sender: FDA-Public Use
  Company Number: CA-JNJFOC-20091106910

PATIENT
  Age: 2 Year
  Sex: Male

DRUGS (2)
  1. CHILDREN'S TYLENOL LIQUID BUBBLEGUM [Suspect]
     Route: 048
  2. CHILDREN'S TYLENOL LIQUID BUBBLEGUM [Suspect]
     Indication: ACCIDENTAL EXPOSURE
     Route: 048

REACTIONS (4)
  - ACCIDENTAL DRUG INTAKE BY CHILD [None]
  - FAILURE OF CHILD RESISTANT MECHANISM FOR PHARMACEUTICAL PRODUCT [None]
  - OVERDOSE [None]
  - TOOTH LOSS [None]
